FAERS Safety Report 15278594 (Version 1)
Quarter: 2020Q3

REPORT INFORMATION
  Report Type: Spontaneous
  Country: IT (occurrence: IT)
  Receive Date: 20180815
  Receipt Date: 20180815
  Transmission Date: 20201105
  Serious: Yes (Death)
  Sender: FDA-Public Use
  Company Number: IT-009507513-1808ITA003692

PATIENT
  Age: 62 Year
  Sex: Male

DRUGS (7)
  1. MERREM [Suspect]
     Active Substance: MEROPENEM
     Indication: RELAPSING FEVER
     Dosage: UNK
     Dates: start: 20180524, end: 20180626
  2. TAZOCIN (PIPERACILLIN SODIUM (+) TAZOBACTAM SODIUM) [Suspect]
     Active Substance: PIPERACILLIN SODIUM\TAZOBACTAM SODIUM
     Indication: RELAPSING FEVER
     Dosage: UNK
     Dates: start: 20180524, end: 20180626
  3. CONGESCOR [Concomitant]
     Active Substance: BISOPROLOL
     Dosage: UNK
  4. VANCOMYCIN HYDROCHLORIDE. [Suspect]
     Active Substance: VANCOMYCIN HYDROCHLORIDE
     Indication: RELAPSING FEVER
     Dosage: UNK
     Dates: start: 20180524, end: 20180626
  5. LUVION (CANRENONE) [Concomitant]
     Active Substance: CANRENONE
     Dosage: UNK
  6. CANCIDAS [Suspect]
     Active Substance: CASPOFUNGIN ACETATE
     Indication: RELAPSING FEVER
     Dosage: UNK
     Dates: start: 20180626, end: 20180629
  7. AMIKACIN. [Suspect]
     Active Substance: AMIKACIN
     Indication: RELAPSING FEVER
     Dosage: UNK
     Dates: start: 20180524, end: 20180626

REACTIONS (1)
  - Toxic epidermal necrolysis [Fatal]

NARRATIVE: CASE EVENT DATE: 20180629
